FAERS Safety Report 8408183-3 (Version None)
Quarter: 2012Q2

REPORT INFORMATION
  Report Type: 
  Country: None (occurrence: None)
  Receive Date: 20120604
  Receipt Date: 20110810
  Transmission Date: 20120825
  Serious: No
  Sender: FDA-Public Use
  Company Number: US-MYLANLABS-2011S1015308

PATIENT
  Age: 81 Year
  Sex: Male

DRUGS (7)
  1. DILTIAZEM HCL [Suspect]
     Route: 048
     Dates: start: 20081001
  2. DILTIAZEM HCL [Suspect]
     Indication: ARTERIOSPASM CORONARY
     Route: 048
     Dates: end: 20081001
  3. ATACAND [Concomitant]
     Indication: BLOOD PRESSURE
     Route: 048
     Dates: start: 20080101
  4. PRAVASTATIN [Concomitant]
     Indication: BLOOD CHOLESTEROL INCREASED
     Route: 048
     Dates: start: 20040101
  5. DILTIAZEM HCL [Suspect]
     Indication: ANGINA PECTORIS
     Route: 048
     Dates: end: 20081001
  6. DILTIAZEM HCL [Suspect]
     Route: 048
     Dates: start: 20081001
  7. ASPIRIN [Concomitant]
     Route: 048

REACTIONS (2)
  - HANGOVER [None]
  - DIZZINESS [None]
